FAERS Safety Report 24649811 (Version 2)
Quarter: 2025Q1

REPORT INFORMATION
  Report Type: Spontaneous
  Country: JP (occurrence: JP)
  Receive Date: 20241121
  Receipt Date: 20250227
  Transmission Date: 20250409
  Serious: Yes (Other)
  Sender: ABBVIE
  Company Number: JP-TAKEDA-2024TJP015294

PATIENT
  Age: 81 Year
  Sex: Male

DRUGS (1)
  1. LEUPLIN [Suspect]
     Active Substance: LEUPROLIDE ACETATE
     Indication: Prostate cancer
     Dosage: 22.5 MILLIGRAM, EVERY 6 MONTHS/PRO FOR INJECTION KIT 22.5 MG
     Route: 050
     Dates: start: 2024

REACTIONS (10)
  - Thrombosis [Unknown]
  - Breast pain [Recovered/Resolved]
  - Testicular disorder [Recovered/Resolved]
  - Fatigue [Recovering/Resolving]
  - Dry mouth [Unknown]
  - Listless [Not Recovered/Not Resolved]
  - Dizziness [Not Recovered/Not Resolved]
  - Dyspnoea [Recovering/Resolving]
  - Lip repair [Unknown]
  - Laryngeal discomfort [Not Recovered/Not Resolved]

NARRATIVE: CASE EVENT DATE: 20240101
